FAERS Safety Report 7532971-9 (Version None)
Quarter: 2011Q2

REPORT INFORMATION
  Report Type: 
  Country: None (occurrence: None)
  Receive Date: 20110601
  Receipt Date: 20110524
  Transmission Date: 20111010
  Serious: Yes (Hospitalization)
  Sender: FDA-Public Use
  Company Number: 2011SP021532

PATIENT
  Age: 54 Year
  Sex: Male

DRUGS (12)
  1. LEVOFLOXACIN HYDRATE [Concomitant]
  2. CYMBALTA [Suspect]
     Indication: DEPRESSION
     Dosage: 20 MG; QD; PO, 40 MG; QD; PO, 60 MG; QD; PO
     Route: 048
     Dates: start: 20100803
  3. CYMBALTA [Suspect]
     Indication: DEPRESSION
     Dosage: 20 MG; QD; PO, 40 MG; QD; PO, 60 MG; QD; PO
     Route: 048
     Dates: end: 20100820
  4. CYMBALTA [Suspect]
     Indication: DEPRESSION
     Dosage: 20 MG; QD; PO, 40 MG; QD; PO, 60 MG; QD; PO
     Route: 048
     Dates: start: 20100821, end: 20100930
  5. AMOXAPINE [Suspect]
     Indication: DEPRESSION
     Dosage: 25 MG; QD; PO, 50 MG; QD; PO
     Route: 048
     Dates: start: 20100930, end: 20101006
  6. AMOXAPINE [Suspect]
     Indication: DEPRESSION
     Dosage: 25 MG; QD; PO, 50 MG; QD; PO
     Route: 048
     Dates: start: 20101007, end: 20101027
  7. LEVOTHYROXINE SODIUM HYDRATE [Concomitant]
  8. MIRTAZAPINE [Suspect]
     Indication: DEPRESSION
     Dosage: 15 MG; QD; PO, 30 MG; QD; PO, 15 MG; QD; PO, 15 MG; QD; PO
     Route: 048
     Dates: start: 20100809, end: 20100901
  9. MIRTAZAPINE [Suspect]
     Indication: DEPRESSION
     Dosage: 15 MG; QD; PO, 30 MG; QD; PO, 15 MG; QD; PO, 15 MG; QD; PO
     Route: 048
     Dates: start: 20100902, end: 20100908
  10. MIRTAZAPINE [Suspect]
     Indication: DEPRESSION
     Dosage: 15 MG; QD; PO, 30 MG; QD; PO, 15 MG; QD; PO, 15 MG; QD; PO
     Route: 048
     Dates: start: 20100909, end: 20100915
  11. MIRTAZAPINE [Suspect]
     Indication: DEPRESSION
     Dosage: 15 MG; QD; PO, 30 MG; QD; PO, 15 MG; QD; PO, 15 MG; QD; PO
     Route: 048
     Dates: start: 20100930, end: 20101027
  12. ESTAZOLAM [Suspect]
     Indication: SLEEP DISORDER
     Dosage: 2 MG; QD; PO
     Route: 048
     Dates: start: 20100803

REACTIONS (5)
  - URINARY RETENTION [None]
  - RENAL IMPAIRMENT [None]
  - HAEMODIALYSIS [None]
  - C-REACTIVE PROTEIN INCREASED [None]
  - PYREXIA [None]
